FAERS Safety Report 9405909 (Version 8)
Quarter: 2015Q3

REPORT INFORMATION
  Report Type: Spontaneous
  Country: US (occurrence: US)
  Receive Date: 20130717
  Receipt Date: 20150710
  Transmission Date: 20151125
  Serious: Yes (Death, Hospitalization, Other)
  Sender: FDA-Public Use
  Company Number: US-GLAXOSMITHKLINE-A1033307A

PATIENT
  Sex: Female

DRUGS (2)
  1. ROSIGLITAZONE MALEATE. [Suspect]
     Active Substance: ROSIGLITAZONE MALEATE
     Indication: DIABETES MELLITUS
     Dosage: 08 MG, UNK
     Route: 048
     Dates: start: 20050401, end: 20110430
  2. AVANDIA [Suspect]
     Active Substance: ROSIGLITAZONE MALEATE
     Indication: DIABETES MELLITUS
     Dosage: 8 MG, QD
     Route: 048
     Dates: start: 200504, end: 201105

REACTIONS (8)
  - Cardiac failure congestive [Fatal]
  - Pleural effusion [Unknown]
  - Arteriosclerosis [Unknown]
  - Myocardial infarction [Unknown]
  - Congestive cardiomyopathy [Unknown]
  - Atrioventricular block first degree [Unknown]
  - Pericardial effusion [Unknown]
  - Sinus tachycardia [Unknown]
